FAERS Safety Report 11087793 (Version 1)
Quarter: 2015Q2

REPORT INFORMATION
  Report Type: Spontaneous
  Country: US (occurrence: None)
  Receive Date: 20150501
  Receipt Date: 20150501
  Transmission Date: 20150821
  Serious: Yes (Other)
  Sender: FDA-Public Use
  Company Number: None

PATIENT
  Age: 51 Year
  Sex: Male

DRUGS (1)
  1. STRIBILD [Suspect]
     Active Substance: COBICISTAT\ELVITEGRAVIR\EMTRICITABINE\TENOFOVIR DISOPROXIL FUMARATE

REACTIONS (7)
  - Bone pain [None]
  - Back pain [None]
  - Rash [None]
  - Irritability [None]
  - Myalgia [None]
  - Hypoaesthesia [None]
  - Dyspepsia [None]

NARRATIVE: CASE EVENT DATE: 20150429
